FAERS Safety Report 6921135-5 (Version None)
Quarter: 2010Q3

REPORT INFORMATION
  Report Type: 
  Country: None (occurrence: None)
  Receive Date: 20100804
  Receipt Date: 20090910
  Transmission Date: 20110219
  Serious: No
  Sender: FDA-Public Use
  Company Number: 2009-3255

PATIENT
  Age: 51 Year
  Sex: Female
  Weight: 88 kg

DRUGS (3)
  1. SOMATULINE DEPOT [Suspect]
     Indication: ACROMEGALY
     Dosage: 120 MG (120 MG, 1 IN 1 M), SUBCUTANEOUS
     Route: 058
     Dates: start: 20090829, end: 20090829
  2. SOMATULINE DEPOT [Suspect]
     Indication: ACROMEGALY
     Dosage: 120 MG (120 MG, 2 X 60 MG MONTHLY), PARENTERAL
     Route: 051
     Dates: start: 20090901
  3. LISINOPRIL [Concomitant]

REACTIONS (4)
  - INJECTION SITE INJURY [None]
  - INJECTION SITE PAIN [None]
  - INJECTION SITE PRURITUS [None]
  - INJECTION SITE SCAR [None]
